FAERS Safety Report 7693606-8 (Version None)
Quarter: 2011Q3

REPORT INFORMATION
  Report Type: 
  Country: None (occurrence: None)
  Receive Date: 20110819
  Receipt Date: 20110812
  Transmission Date: 20111222
  Serious: Yes (Life-Threatening)
  Sender: FDA-Public Use
  Company Number: PHHY2011DE72629

PATIENT
  Age: 14 Year
  Sex: Male

DRUGS (1)
  1. RITALIN [Suspect]
     Indication: DISTURBANCE IN ATTENTION
     Dosage: 60 MG, QD
     Route: 048

REACTIONS (1)
  - INTRAVENTRICULAR HAEMORRHAGE [None]
